FAERS Safety Report 8059303-4 (Version None)
Quarter: 2012Q1

REPORT INFORMATION
  Report Type: 
  Country: None (occurrence: None)
  Receive Date: 20120119
  Receipt Date: 20120119
  Transmission Date: 20120608
  Serious: Yes (Life-Threatening)
  Sender: FDA-Public Use
  Company Number: None

PATIENT
  Age: 53 Year
  Sex: Male
  Weight: 115.2 kg

DRUGS (3)
  1. MICARDIS [Suspect]
     Indication: PROPHYLAXIS
     Dosage: 1/2 TAB (10MG) ONCE DAILY BY MOUTH (047)
     Route: 048
     Dates: start: 20111021, end: 20111025
  2. MICARDIS [Suspect]
     Indication: RENAL DISORDER
     Dosage: 1/2 TAB (10MG) ONCE DAILY BY MOUTH (047)
     Route: 048
     Dates: start: 20111021, end: 20111025
  3. MICARDIS [Suspect]
     Indication: COUGH
     Dosage: 1/2 TAB (10MG) ONCE DAILY BY MOUTH (047)
     Route: 048
     Dates: start: 20111021, end: 20111025

REACTIONS (15)
  - CHILLS [None]
  - FEELING COLD [None]
  - FEELING ABNORMAL [None]
  - PAIN IN EXTREMITY [None]
  - FIBRIN D DIMER INCREASED [None]
  - HEADACHE [None]
  - SOMNOLENCE [None]
  - THROMBOSIS [None]
  - MYALGIA [None]
  - HEART RATE INCREASED [None]
  - DISTURBANCE IN ATTENTION [None]
  - BODY TEMPERATURE INCREASED [None]
  - ASTHENIA [None]
  - MALAISE [None]
  - DIZZINESS [None]
